FAERS Safety Report 6348145-3 (Version None)
Quarter: 2009Q3

REPORT INFORMATION
  Report Type: 
  Country: None (occurrence: None)
  Receive Date: 20090910
  Receipt Date: 20090903
  Transmission Date: 20100115
  Serious: Yes (Other)
  Sender: FDA-Public Use
  Company Number: GB-ABBOTT-09P-167-0595096-00

PATIENT
  Age: 10 Year
  Sex: Female

DRUGS (3)
  1. EPILIM TABLETS [Suspect]
     Indication: EPILEPSY
     Route: 048
     Dates: start: 20090501
  2. KEPPRA [Suspect]
     Indication: EPILEPSY
     Route: 048
     Dates: start: 20090301
  3. CLOBAZAM [Concomitant]
     Indication: DRUG USE FOR UNKNOWN INDICATION
     Route: 048

REACTIONS (1)
  - ONYCHOMADESIS [None]
